APPROVED DRUG PRODUCT: CALCIUM GLUCONATE IN SODIUM CHLORIDE
Active Ingredient: CALCIUM GLUCONATE
Strength: 1GM/50ML (20MG/ML)
Dosage Form/Route: SOLUTION;INTRAVENOUS
Application: N208418 | Product #004
Applicant: FRESENIUS KABI USA LLC
Approved: Jun 17, 2021 | RLD: Yes | RS: No | Type: DISCN

PATENTS:
Patent 10130646 | Expires: Jul 25, 2037